FAERS Safety Report 4626255-6 (Version None)
Quarter: 2005Q2

REPORT INFORMATION
  Report Type: 
  Country: None (occurrence: None)
  Receive Date: 20050404
  Receipt Date: 20041102
  Transmission Date: 20051028
  Serious: Yes (Hospitalization, Disabling)
  Sender: FDA-Public Use
  Company Number: US-ROCHE-385211

PATIENT
  Age: 20 Year
  Sex: Male
  Weight: 98 kg

DRUGS (3)
  1. ACCUTANE [Suspect]
     Indication: ACNE
     Route: 048
     Dates: start: 19971110
  2. ACCUTANE [Suspect]
     Dosage: THERAPY FOR SEVEN WEEKS
     Route: 048
     Dates: start: 19980122, end: 19980312
  3. ACCUTANE [Suspect]
     Dosage: THERAPY FOR SIXTEEN WEEKS
     Route: 048
     Dates: start: 19980408, end: 19980827

REACTIONS (28)
  - ABDOMINAL PAIN [None]
  - ANGIOPATHY [None]
  - ANHEDONIA [None]
  - ANXIETY [None]
  - BACK PAIN [None]
  - BRONCHITIS [None]
  - COLITIS [None]
  - COLITIS ULCERATIVE [None]
  - CONSTIPATION [None]
  - COUGH [None]
  - DEPRESSION [None]
  - DISTURBANCE IN ATTENTION [None]
  - DRUG ABUSER [None]
  - GASTROINTESTINAL DISORDER [None]
  - HAEMATOCHEZIA [None]
  - INFLAMMATORY BOWEL DISEASE [None]
  - INJURY [None]
  - INTESTINAL HAEMORRHAGE [None]
  - MULTI-ORGAN DISORDER [None]
  - NECK PAIN [None]
  - PAIN [None]
  - PROCTITIS [None]
  - RECTAL HAEMORRHAGE [None]
  - SPERM COUNT DECREASED [None]
  - SPERMATOZOA MORPHOLOGY ABNORMAL [None]
  - TESTICULAR PAIN [None]
  - TREATMENT NONCOMPLIANCE [None]
  - VARICOCELE [None]
